FAERS Safety Report 6944750-1 (Version None)
Quarter: 2010Q3

REPORT INFORMATION
  Report Type: 
  Country: None (occurrence: None)
  Receive Date: 20100827
  Receipt Date: 20100818
  Transmission Date: 20110219
  Serious: Yes (Hospitalization, Other)
  Sender: FDA-Public Use
  Company Number: US-ALEXION-A201000342

PATIENT
  Sex: Male

DRUGS (5)
  1. SOLIRIS [Suspect]
     Indication: PAROXYSMAL NOCTURNAL HAEMOGLOBINURIA
     Dosage: 600 MG, QW
     Route: 042
     Dates: start: 20091002, end: 20091023
  2. SOLIRIS [Suspect]
     Dosage: 900 MG, Q2W
     Route: 042
     Dates: start: 20091030
  3. EXJADE [Concomitant]
  4. LEVOXYL [Concomitant]
  5. MEGACE [Concomitant]

REACTIONS (4)
  - FATIGUE [None]
  - HAEMOGLOBIN DECREASED [None]
  - HYPOTENSION [None]
  - PNEUMONIA [None]
